FAERS Safety Report 4863288-9 (Version None)
Quarter: 2005Q4

REPORT INFORMATION
  Report Type: 
  Country: None (occurrence: None)
  Receive Date: 20051222
  Receipt Date: 20051213
  Transmission Date: 20060501
  Serious: Yes (Other)
  Sender: FDA-Public Use
  Company Number: IE-BOEHRINGER INGELHEIM PHARMACEUTICALS, INC.-2005-UK-02652IE

PATIENT
  Sex: Female

DRUGS (3)
  1. ALUPENT [Suspect]
     Indication: LOWER RESPIRATORY TRACT INFECTION
     Route: 048
     Dates: start: 20051123, end: 20051124
  2. PREDNESOL [Concomitant]
  3. DISTACLOR LA [Concomitant]

REACTIONS (4)
  - ABDOMINAL PAIN [None]
  - DIARRHOEA [None]
  - HYPOKINESIA [None]
  - TREMOR [None]
